FAERS Safety Report 19107236 (Version 1)
Quarter: 2021Q2

REPORT INFORMATION
  Report Type: Spontaneous
  Country: US (occurrence: US)
  Receive Date: 20210407
  Receipt Date: 20210407
  Transmission Date: 20210717
  Serious: Yes (Hospitalization)
  Sender: FDA-Public Use
  Company Number: None

PATIENT
  Age: 72 Year
  Sex: Female

DRUGS (4)
  1. SYNTHROID [Concomitant]
     Active Substance: LEVOTHYROXINE SODIUM
  2. CAPECITABINE. [Suspect]
     Active Substance: CAPECITABINE
     Indication: BREAST CANCER
     Route: 048
     Dates: start: 20210131
  3. CAPECITABINE. [Concomitant]
     Active Substance: CAPECITABINE
  4. LEVOIHYROXIN [Concomitant]

REACTIONS (2)
  - Therapy interrupted [None]
  - Unevaluable event [None]

NARRATIVE: CASE EVENT DATE: 20210406
